FAERS Safety Report 7496532-2 (Version None)
Quarter: 2011Q2

REPORT INFORMATION
  Report Type: 
  Country: None (occurrence: None)
  Receive Date: 20110523
  Receipt Date: 20110512
  Transmission Date: 20111010
  Serious: Yes (Other)
  Sender: FDA-Public Use
  Company Number: US-GILEAD-2011-0039511

PATIENT
  Sex: Male
  Weight: 2.52 kg

DRUGS (3)
  1. TRUVADA [Suspect]
     Indication: HIV INFECTION
     Dates: start: 20100721
  2. ATAZANAVIR [Concomitant]
     Indication: HIV INFECTION
     Dates: start: 20100721
  3. RITONAVIR [Concomitant]
     Indication: HIV INFECTION
     Dates: start: 20100721

REACTIONS (2)
  - MATERNAL DRUGS AFFECTING FOETUS [None]
  - STREPTOCOCCUS TEST POSITIVE [None]
